FAERS Safety Report 21471659 (Version 1)
Quarter: 2022Q4

REPORT INFORMATION
  Report Type: Spontaneous
  Country: US (occurrence: None)
  Receive Date: 20221018
  Receipt Date: 20221018
  Transmission Date: 20230112
  Serious: Yes (Other)
  Sender: FDA-Public Use
  Company Number: None

PATIENT
  Age: 62 Year
  Sex: Male
  Weight: 85.5 kg

DRUGS (2)
  1. XHANCE [Suspect]
     Active Substance: FLUTICASONE PROPIONATE
     Indication: Acute sinusitis
     Dosage: OTHER QUANTITY : 1 SPRAY(S);?FREQUENCY : EVERY 12 HOURS;?
     Route: 055
     Dates: start: 20221006, end: 20221014
  2. VITAMINS [Concomitant]
     Active Substance: VITAMINS

REACTIONS (7)
  - Swelling face [None]
  - Eye swelling [None]
  - Nausea [None]
  - Renal disorder [None]
  - Burning sensation [None]
  - Malaise [None]
  - Asthenia [None]

NARRATIVE: CASE EVENT DATE: 20221010
